FAERS Safety Report 8053325-5 (Version None)
Quarter: 2012Q1

REPORT INFORMATION
  Report Type: 
  Country: None (occurrence: None)
  Receive Date: 20120118
  Receipt Date: 20120104
  Transmission Date: 20120608
  Serious: Yes (Hospitalization, Other)
  Sender: FDA-Public Use
  Company Number: US-WATSON-2012-00106

PATIENT
  Age: 29 Year
  Sex: Female

DRUGS (1)
  1. PROGESTERONE IN OIL INJ [Suspect]
     Indication: IN VITRO FERTILISATION
     Dosage: 50 MG, DAILY
     Route: 030

REACTIONS (10)
  - FATIGUE [None]
  - DYSPNOEA [None]
  - COUGH [None]
  - LUNG INFILTRATION [None]
  - PYREXIA [None]
  - WHEEZING [None]
  - HYPERSENSITIVITY [None]
  - TACHYCARDIA [None]
  - ANXIETY [None]
  - RALES [None]
